FAERS Safety Report 6568854-0 (Version None)
Quarter: 2010Q1

REPORT INFORMATION
  Report Type: 
  Country: None (occurrence: None)
  Receive Date: 20100201
  Receipt Date: 20100201
  Transmission Date: 20100710
  Serious: Yes (Disabling)
  Sender: FDA-Public Use
  Company Number: None

PATIENT
  Age: 77 Year
  Sex: Male
  Weight: 78.4723 kg

DRUGS (1)
  1. LEVAQUIN [Suspect]
     Indication: TENDONITIS
     Dosage: 10 1 DAILY
     Dates: start: 20090225, end: 20090307

REACTIONS (2)
  - SWELLING [None]
  - TENDON DISORDER [None]
